FAERS Safety Report 12401026 (Version 4)
Quarter: 2017Q2

REPORT INFORMATION
  Report Type: Spontaneous
  Country: US (occurrence: US)
  Receive Date: 20160525
  Receipt Date: 20170606
  Transmission Date: 20170830
  Serious: No
  Sender: FDA-Public Use
  Company Number: US-SA-2015SA141263

PATIENT
  Age: 56 Year
  Sex: Male
  Weight: 101.6 kg

DRUGS (4)
  1. ATORVASTATIN [Concomitant]
     Active Substance: ATORVASTATIN
     Indication: BLOOD CHOLESTEROL
     Dosage: START DATE: 10 YEARS AGO
  2. LANTUS SOLOSTAR [Suspect]
     Active Substance: INSULIN GLARGINE
     Indication: TYPE 2 DIABETES MELLITUS
     Dosage: DOSE: 30-34 UNITS
     Route: 065
     Dates: start: 2012
  3. SOLOSTAR [Suspect]
     Active Substance: DEVICE
     Indication: TYPE 2 DIABETES MELLITUS
     Dates: start: 2012
  4. NOVOLOG [Concomitant]
     Active Substance: INSULIN ASPART
     Indication: DIABETES MELLITUS
     Dosage: START DATE: 17-20 YEARS AGO?8-16MG

REACTIONS (4)
  - Visual impairment [Unknown]
  - Blood glucose increased [Unknown]
  - Device issue [Unknown]
  - Wrong technique in product usage process [Unknown]
